FAERS Safety Report 4803870-8 (Version None)
Quarter: 2005Q4

REPORT INFORMATION
  Report Type: 
  Country: None (occurrence: None)
  Receive Date: 20051013
  Receipt Date: 20050928
  Transmission Date: 20060501
  Serious: Yes (Hospitalization, Other)
  Sender: FDA-Public Use
  Company Number: 8012281

PATIENT
  Age: 49 Year
  Sex: Female
  Weight: 81.36 kg

DRUGS (9)
  1. LORTAB [Suspect]
     Indication: PAIN
     Dosage: 10 MG PO
     Route: 048
     Dates: start: 20050501
  2. REMICADE [Suspect]
     Indication: RHEUMATOID ARTHRITIS
     Dosage: IV
     Route: 042
     Dates: start: 20050501
  3. XANAX [Suspect]
     Indication: TOBACCO ABUSE
     Dosage: 1 MG
     Dates: start: 20030201
  4. LAXAPRO [Concomitant]
  5. ARAVA [Concomitant]
  6. CRESTOR [Concomitant]
  7. PROTONIX [Concomitant]
  8. LEVOTHYROXINE SODIUM [Concomitant]
  9. TOPIRAMATE [Concomitant]

REACTIONS (12)
  - BALANCE DISORDER [None]
  - BLOOD TRIGLYCERIDES INCREASED [None]
  - DELUSION [None]
  - DRUG WITHDRAWAL SYNDROME [None]
  - DYSARTHRIA [None]
  - ELECTROCARDIOGRAM T WAVE ABNORMAL [None]
  - FEELING ABNORMAL [None]
  - HALLUCINATION, VISUAL [None]
  - MEMORY IMPAIRMENT [None]
  - PARAESTHESIA [None]
  - SLEEP DISORDER [None]
  - VERY LOW DENSITY LIPOPROTEIN INCREASED [None]
